FAERS Safety Report 20336862 (Version 1)
Quarter: 2022Q1

REPORT INFORMATION
  Report Type: Spontaneous
  Country: US (occurrence: US)
  Receive Date: 20220114
  Receipt Date: 20220114
  Transmission Date: 20220423
  Serious: No
  Sender: FDA-Public Use
  Company Number: US-009507513-2112USA007886

PATIENT
  Age: 48 Year
  Sex: Female

DRUGS (1)
  1. NOXAFIL [Suspect]
     Active Substance: POSACONAZOLE
     Indication: Histoplasmosis disseminated
     Dosage: SHE COMPLETED 12 MONTHS OF POSACONAZOLE
     Route: 048

REACTIONS (1)
  - Off label use [Unknown]
